FAERS Safety Report 16384025 (Version 1)
Quarter: 2019Q2

REPORT INFORMATION
  Report Type: Spontaneous
  Country: FR (occurrence: FR)
  Receive Date: 20190603
  Receipt Date: 20190603
  Transmission Date: 20190711
  Serious: Yes (Hospitalization)
  Sender: FDA-Public Use
  Company Number: FR-PFIZER INC-2019228866

PATIENT
  Age: 14 Year
  Sex: Female
  Weight: 50 kg

DRUGS (3)
  1. IBUPROFEN. [Suspect]
     Active Substance: IBUPROFEN
     Indication: SUICIDE ATTEMPT
     Dosage: 8 G, SINGLE
     Route: 048
     Dates: start: 20190403, end: 20190403
  2. DOLIPRANE [Suspect]
     Active Substance: ACETAMINOPHEN
     Indication: SUICIDE ATTEMPT
     Dosage: 32 DF, SINGLE
     Route: 048
     Dates: start: 20190403, end: 20190403
  3. IXPRIM [Suspect]
     Active Substance: ACETAMINOPHEN\TRAMADOL HYDROCHLORIDE
     Indication: SUICIDE ATTEMPT
     Dosage: 22 DF, SINGLE (825MG/7150MG)
     Route: 048
     Dates: start: 20190403, end: 20190403

REACTIONS (2)
  - Poisoning deliberate [Recovered/Resolved]
  - Vomiting [Recovered/Resolved]

NARRATIVE: CASE EVENT DATE: 20190403
